FAERS Safety Report 7653016-6 (Version None)
Quarter: 2011Q3

REPORT INFORMATION
  Report Type: 
  Country: None (occurrence: None)
  Receive Date: 20110802
  Receipt Date: 20110802
  Transmission Date: 20111222
  Serious: Yes (Disabling, Other)
  Sender: FDA-Public Use
  Company Number: None

PATIENT
  Sex: Female
  Weight: 108.8633 kg

DRUGS (1)
  1. VALTURNA [Suspect]
     Indication: HYPERTENSION
     Dosage: 1 TAB DAILY
     Dates: start: 20110301, end: 20110601

REACTIONS (3)
  - WALKING AID USER [None]
  - MYALGIA [None]
  - PAIN IN EXTREMITY [None]
